FAERS Safety Report 19611740 (Version 5)
Quarter: 2021Q4

REPORT INFORMATION
  Report Type: Spontaneous
  Country: JP (occurrence: JP)
  Receive Date: 20210727
  Receipt Date: 20211011
  Transmission Date: 20220303
  Serious: Yes (Other)
  Sender: FDA-Public Use
  Company Number: JP-ASTELLAS-2021JP010349

PATIENT
  Age: 77 Year
  Sex: Male

DRUGS (9)
  1. XOSPATA [Suspect]
     Active Substance: GILTERITINIB
     Indication: Acute myeloid leukaemia recurrent
     Route: 048
     Dates: start: 202007
  2. XOSPATA [Suspect]
     Active Substance: GILTERITINIB
     Dosage: 40 MG, ONCE DAILY, MONDAY, WEDNESDAY AND FRIDAY
     Route: 048
  3. XOSPATA [Suspect]
     Active Substance: GILTERITINIB
     Dosage: 80 MG, ONCE DAILY, TUESDAY, THURSDAY, SATURDAY AND SUNDAY
     Route: 048
  4. XOSPATA [Suspect]
     Active Substance: GILTERITINIB
     Route: 048
     Dates: start: 20210602
  5. XOSPATA [Suspect]
     Active Substance: GILTERITINIB
     Route: 048
     Dates: start: 202107
  6. XOSPATA [Suspect]
     Active Substance: GILTERITINIB
     Route: 048
     Dates: start: 20210720
  7. XOSPATA [Suspect]
     Active Substance: GILTERITINIB
     Route: 048
     Dates: end: 20210810
  8. CYTARABINE [Suspect]
     Active Substance: CYTARABINE
     Indication: Acute myeloid leukaemia
     Dosage: UNK UNK, UNKNOWN FREQ.
     Route: 065
     Dates: start: 202108, end: 20210826
  9. FLUCONAZOLE [Concomitant]
     Active Substance: FLUCONAZOLE
     Indication: Product used for unknown indication
     Dosage: UNK UNK, UNKNOWN FREQ.
     Route: 048

REACTIONS (5)
  - Electrocardiogram QT prolonged [Recovered/Resolved]
  - Acute myeloid leukaemia [Recovered/Resolved]
  - Febrile neutropenia [Recovered/Resolved]
  - Product use issue [Unknown]
  - Off label use [Unknown]

NARRATIVE: CASE EVENT DATE: 20210602
